FAERS Safety Report 14637666 (Version 3)
Quarter: 2018Q2

REPORT INFORMATION
  Report Type: Spontaneous
  Country: DE (occurrence: DE)
  Receive Date: 20180314
  Receipt Date: 20180405
  Transmission Date: 20180711
  Serious: Yes (Other)
  Sender: FDA-Public Use
  Company Number: DE-BEH-2018088653

PATIENT
  Sex: Female
  Weight: 75 kg

DRUGS (31)
  1. HIZENTRA [Suspect]
     Active Substance: HUMAN IMMUNOGLOBULIN G
     Dosage: UNK
     Route: 058
     Dates: start: 20180214, end: 20180214
  2. HIZENTRA [Suspect]
     Active Substance: HUMAN IMMUNOGLOBULIN G
     Dosage: 10 G (50 ML), BIW (EVERY 3 DAYS)
     Route: 058
  3. HIZENTRA [Suspect]
     Active Substance: HUMAN IMMUNOGLOBULIN G
     Indication: CHRONIC INFLAMMATORY DEMYELINATING POLYRADICULONEUROPATHY
     Dosage: 100 G, QMT
     Route: 058
  4. HIZENTRA [Suspect]
     Active Substance: HUMAN IMMUNOGLOBULIN G
     Dosage: UNK
     Route: 058
     Dates: start: 20171110
  5. HIZENTRA [Suspect]
     Active Substance: HUMAN IMMUNOGLOBULIN G
     Dosage: UNK
     Route: 058
     Dates: start: 20180125, end: 20180125
  6. HUMAN IMMUNOGLOBULIN IV (INN) [Suspect]
     Active Substance: HUMAN IMMUNOGLOBULIN G
     Dosage: 1 DF, SINGLE
     Route: 042
     Dates: start: 201712, end: 201712
  7. HIZENTRA [Suspect]
     Active Substance: HUMAN IMMUNOGLOBULIN G
     Dosage: UNK
     Route: 058
     Dates: start: 20180107, end: 20180107
  8. HIZENTRA [Suspect]
     Active Substance: HUMAN IMMUNOGLOBULIN G
     Dosage: UNK
     Route: 058
     Dates: start: 20180119, end: 20180119
  9. HIZENTRA [Suspect]
     Active Substance: HUMAN IMMUNOGLOBULIN G
     Dosage: UNK
     Route: 058
     Dates: start: 20180207, end: 20180207
  10. HIZENTRA [Suspect]
     Active Substance: HUMAN IMMUNOGLOBULIN G
     Dosage: UNK
     Route: 058
     Dates: start: 20180210, end: 20180210
  11. HIZENTRA [Suspect]
     Active Substance: HUMAN IMMUNOGLOBULIN G
     Dosage: UNK
     Route: 058
     Dates: start: 20180304, end: 20180304
  12. HIZENTRA [Suspect]
     Active Substance: HUMAN IMMUNOGLOBULIN G
     Dosage: UNK
     Route: 058
     Dates: start: 20180203, end: 20180203
  13. HIZENTRA [Suspect]
     Active Substance: HUMAN IMMUNOGLOBULIN G
     Dosage: UNK
     Route: 058
     Dates: start: 20180227, end: 20180227
  14. HIZENTRA [Suspect]
     Active Substance: HUMAN IMMUNOGLOBULIN G
     Dosage: UNK
     Route: 058
     Dates: start: 20180302, end: 20180302
  15. HUMAN IMMUNOGLOBULIN IV (INN) [Suspect]
     Active Substance: HUMAN IMMUNOGLOBULIN G
     Indication: DRUG INEFFECTIVE
     Dosage: 90 G, SINGLE
     Route: 042
     Dates: start: 201802, end: 201802
  16. HIZENTRA [Suspect]
     Active Substance: HUMAN IMMUNOGLOBULIN G
     Dosage: UNK
     Route: 058
     Dates: start: 20180113, end: 20180113
  17. HIZENTRA [Suspect]
     Active Substance: HUMAN IMMUNOGLOBULIN G
     Dosage: UNK
     Route: 058
     Dates: start: 20180128, end: 20180128
  18. HIZENTRA [Suspect]
     Active Substance: HUMAN IMMUNOGLOBULIN G
     Dosage: UNK
     Route: 058
     Dates: start: 20180130, end: 20180130
  19. HIZENTRA [Suspect]
     Active Substance: HUMAN IMMUNOGLOBULIN G
     Dosage: UNK
     Route: 058
     Dates: start: 20180205, end: 20180205
  20. HIZENTRA [Suspect]
     Active Substance: HUMAN IMMUNOGLOBULIN G
     Dosage: UNK
     Route: 058
     Dates: start: 20180222, end: 20180222
  21. HIZENTRA [Suspect]
     Active Substance: HUMAN IMMUNOGLOBULIN G
     Dosage: UNK
     Route: 058
     Dates: start: 20180224, end: 20180224
  22. HUMAN IMMUNOGLOBULIN IV (INN) [Suspect]
     Active Substance: HUMAN IMMUNOGLOBULIN G
     Dosage: 45 G, TOT
     Route: 042
     Dates: start: 20180322, end: 20180322
  23. HUMAN IMMUNOGLOBULIN IV (INN) [Suspect]
     Active Substance: HUMAN IMMUNOGLOBULIN G
     Dosage: 45 G, TOT
     Route: 042
     Dates: start: 20180323, end: 20180323
  24. HIZENTRA [Suspect]
     Active Substance: HUMAN IMMUNOGLOBULIN G
     Dosage: UNK
     Route: 058
     Dates: start: 20180104, end: 20180104
  25. HIZENTRA [Suspect]
     Active Substance: HUMAN IMMUNOGLOBULIN G
     Dosage: UNK
     Route: 058
     Dates: start: 20180110, end: 20180110
  26. HIZENTRA [Suspect]
     Active Substance: HUMAN IMMUNOGLOBULIN G
     Dosage: UNK
     Route: 058
     Dates: start: 20180116, end: 20180116
  27. HIZENTRA [Suspect]
     Active Substance: HUMAN IMMUNOGLOBULIN G
     Dosage: UNK
     Route: 058
     Dates: start: 20180122, end: 20180122
  28. HIZENTRA [Suspect]
     Active Substance: HUMAN IMMUNOGLOBULIN G
     Dosage: UNK
     Route: 058
     Dates: start: 20180218, end: 20180218
  29. HIZENTRA [Suspect]
     Active Substance: HUMAN IMMUNOGLOBULIN G
     Dosage: UNK
     Route: 058
     Dates: start: 20180101, end: 20180101
  30. HIZENTRA [Suspect]
     Active Substance: HUMAN IMMUNOGLOBULIN G
     Dosage: UNK
     Route: 058
     Dates: start: 20180216, end: 20180216
  31. HIZENTRA [Suspect]
     Active Substance: HUMAN IMMUNOGLOBULIN G
     Dosage: UNK
     Route: 058
     Dates: start: 20180307, end: 20180307

REACTIONS (2)
  - Drug ineffective [Not Recovered/Not Resolved]
  - Chronic inflammatory demyelinating polyradiculoneuropathy [Not Recovered/Not Resolved]
